FAERS Safety Report 5239074-7 (Version None)
Quarter: 2007Q1

REPORT INFORMATION
  Report Type: 
  Country: None (occurrence: None)
  Receive Date: 20061208
  Receipt Date: 20050426
  Transmission Date: 20070707
  Serious: Yes (Other)
  Sender: FDA-Public Use
  Company Number: 2005UW06505

PATIENT
  Age: 41 Year
  Sex: Male
  Weight: 113.39 kg

DRUGS (6)
  1. CRESTOR [Suspect]
     Indication: HIGH DENSITY LIPOPROTEIN DECREASED
     Dosage: 10 MG DAILY PO
     Route: 047
     Dates: start: 20040901
  2. NIASPAN [Concomitant]
  3. NADOLOL [Concomitant]
  4. PRILOSEC [Concomitant]
  5. XALATAN [Concomitant]
  6. AVAPRO [Concomitant]

REACTIONS (1)
  - HIGH DENSITY LIPOPROTEIN DECREASED [None]
